FAERS Safety Report 15587608 (Version 1)
Quarter: 2018Q4

REPORT INFORMATION
  Report Type: Spontaneous
  Country: US (occurrence: US)
  Receive Date: 20181101
  Receipt Date: 20181101
  Transmission Date: 20190205
  Serious: No
  Sender: FDA-Public Use
  Company Number: None

PATIENT
  Age: 59 Year
  Sex: Female

DRUGS (2)
  1. OTEZLA [Suspect]
     Active Substance: APREMILAST
     Indication: POLYARTHRITIS
     Dosage: TAKE 1 TABLET BY MOUTH TWICE DAILY AS DIRECTED
     Route: 048
     Dates: start: 201809
  2. OTEZLA [Suspect]
     Active Substance: APREMILAST
     Indication: PSORIASIS
     Dosage: TAKE 1 TABLET BY MOUTH TWICE DAILY AS DIRECTED
     Route: 048
     Dates: start: 201809

REACTIONS (2)
  - Psoriatic arthropathy [None]
  - Ligament sprain [None]
